FAERS Safety Report 17741749 (Version 2)
Quarter: 2020Q2

REPORT INFORMATION
  Report Type: Spontaneous
  Country: CH (occurrence: CH)
  Receive Date: 20200504
  Receipt Date: 20200602
  Transmission Date: 20200714
  Serious: Yes (Other)
  Sender: FDA-Public Use
  Company Number: CH-SA-2020SA114056

PATIENT

DRUGS (29)
  1. PARACETAMOL [Suspect]
     Active Substance: ACETAMINOPHEN
     Dosage: MAX 3X/D ; AS NECESSARY
     Route: 042
     Dates: start: 20200405, end: 20200412
  2. MOVICOL [Concomitant]
     Active Substance: POLYETHYLENE GLYCOL 3350\POTASSIUM CHLORIDE\SODIUM BICARBONATE\SODIUM CHLORIDE
     Dosage: UNK, PRN
     Dates: start: 20200407, end: 20200412
  3. PLAQUENIL [Suspect]
     Active Substance: HYDROXYCHLOROQUINE SULFATE
     Dosage: IN TOTAL
     Route: 048
     Dates: start: 20200404, end: 20200404
  4. CLEXANE [Suspect]
     Active Substance: ENOXAPARIN SODIUM
     Dosage: 40 MG, QD
     Route: 058
     Dates: start: 20200405, end: 20200406
  5. PIPERACILLIN/TAZOBACTAM [Suspect]
     Active Substance: PIPERACILLIN SODIUM\TAZOBACTAM SODIUM
     Dosage: 4.5 G, TID
     Route: 041
     Dates: start: 20200409, end: 20200412
  6. BENERVA [Concomitant]
     Active Substance: THIAMINE HYDROCHLORIDE
     Dates: start: 20200411, end: 20200411
  7. LOPINAVIR/RITONAVIR [Suspect]
     Active Substance: LOPINAVIR\RITONAVIR
     Dosage: 400 MG, BID
     Route: 048
     Dates: start: 20200405, end: 20200405
  8. CLEXANE [Suspect]
     Active Substance: ENOXAPARIN SODIUM
     Dosage: 40 MG, BID
     Route: 058
     Dates: start: 20200407, end: 20200412
  9. TORASEMIDE [Concomitant]
     Active Substance: TORSEMIDE
     Dates: start: 20200410, end: 20200411
  10. POTASSIUM [Concomitant]
     Active Substance: POTASSIUM
     Dates: start: 20200410, end: 20200411
  11. NOVORAPID [Concomitant]
     Active Substance: INSULIN ASPART
     Dosage: UNK
     Dates: start: 20200414
  12. LOPINAVIR/RITONAVIR [Suspect]
     Active Substance: LOPINAVIR\RITONAVIR
     Dosage: 400 MG, BID
     Route: 048
     Dates: start: 20200407, end: 20200410
  13. NOVASOURCE GI CONTROL [Concomitant]
     Dosage: UNK
     Dates: start: 20200411
  14. AMOXICILLIN SODIUM/POTASSIUM CLAVULANATE [Suspect]
     Active Substance: AMOXICILLIN\CLAVULANATE POTASSIUM
     Dosage: 1.2 G, QID
     Route: 041
     Dates: start: 20200404, end: 20200409
  15. ATRACURIUM [Concomitant]
     Active Substance: ATRACURIUM
     Dosage: UNK
     Dates: start: 20200411
  16. CLEXANE [Suspect]
     Active Substance: ENOXAPARIN SODIUM
     Dosage: UNK
     Route: 058
     Dates: start: 20200413, end: 20200414
  17. IPRAMOL [Concomitant]
     Active Substance: ALBUTEROL SULFATE\IPRATROPIUM BROMIDE
     Dosage: UNK
     Dates: start: 20200405, end: 20200405
  18. TEMESTA [LORAZEPAM] [Concomitant]
     Active Substance: LORAZEPAM
     Dates: start: 20200408, end: 20200408
  19. DORMICUM [MIDAZOLAM HYDROCHLORIDE] [Concomitant]
     Dosage: UNK
     Dates: start: 20200411
  20. HEPARIN [Concomitant]
     Active Substance: HEPARIN SODIUM
     Dosage: UNK
     Dates: start: 20200414
  21. SOLU-MEDROL [Concomitant]
     Active Substance: METHYLPREDNISOLONE SODIUM SUCCINATE
     Dosage: UNK
     Dates: start: 20200414
  22. RELISTOR [Concomitant]
     Active Substance: METHYLNALTREXONE BROMIDE
     Dosage: UNK
     Dates: start: 20200414
  23. VENTOLIN [Concomitant]
     Active Substance: ALBUTEROL SULFATE
     Dosage: UNK, PRN
     Dates: start: 20200405, end: 20200412
  24. CLEXANE [Suspect]
     Active Substance: ENOXAPARIN SODIUM
     Dosage: 40 MG, BID
     Route: 058
     Dates: start: 20200414
  25. FENTANYL. [Concomitant]
     Active Substance: FENTANYL
     Dosage: UNK
     Dates: start: 20200411
  26. AZITHROMYCIN ANHYDROUS. [Suspect]
     Active Substance: AZITHROMYCIN ANHYDROUS
     Dosage: 500 MG, QD
     Route: 048
     Dates: start: 20200405, end: 20200409
  27. TAVANIC [Concomitant]
     Active Substance: LEVOFLOXACIN
     Dates: start: 20200412, end: 20200413
  28. PHOSPHATE [POTASSIUM BICARBONATE;SODIUM PHOSPHATE MONOBASIC] [Concomitant]
     Dosage: UNK
     Dates: start: 20200413
  29. ANTIBIOTICS FOR OTIC AND NASAL USE [Concomitant]
     Dosage: UNK
     Dates: start: 20200411

REACTIONS (1)
  - Hepatocellular injury [Recovered/Resolved]

NARRATIVE: CASE EVENT DATE: 20200412
